FAERS Safety Report 4984747-4 (Version None)
Quarter: 2006Q2

REPORT INFORMATION
  Report Type: 
  Country: None (occurrence: None)
  Receive Date: 20060419
  Receipt Date: 20060330
  Transmission Date: 20061013
  Serious: Yes (Hospitalization)
  Sender: FDA-Public Use
  Company Number: NL200604000205

PATIENT
  Age: 61 Year
  Sex: Male
  Weight: 83.4 kg

DRUGS (6)
  1. SOMATROPIN (SOMATROPIN) VIAL [Suspect]
     Indication: GROWTH HORMONE DEFICIENCY
     Dosage: 02 MG, SUBCUTANEOUS
     Route: 058
     Dates: start: 20010309
  2. HYDROCORTISONE [Concomitant]
  3. FLUDROCORTISONE ACETATE [Concomitant]
  4. LEVOTHYROXINE SODIUM [Concomitant]
  5. TESTOSTERONE [Concomitant]
  6. CAPOTEN [Concomitant]

REACTIONS (1)
  - ADRENOCORTICAL INSUFFICIENCY ACUTE [None]
